FAERS Safety Report 6132440-7 (Version None)
Quarter: 2009Q1

REPORT INFORMATION
  Report Type: 
  Country: None (occurrence: None)
  Receive Date: 20090324
  Receipt Date: 20090309
  Transmission Date: 20090719
  Serious: Yes (Other)
  Sender: FDA-Public Use
  Company Number: 2009S1004077

PATIENT
  Age: 13 Year
  Sex: Male

DRUGS (1)
  1. SALBUTAMOL (SALBUTAMOL) [Suspect]
     Indication: INTENTIONAL DRUG MISUSE
     Dosage: TOPICAL
     Route: 061

REACTIONS (4)
  - BLISTER [None]
  - ERYTHEMA [None]
  - SCAB [None]
  - THERMAL BURN [None]
